FAERS Safety Report 9029897 (Version 2)
Quarter: 2013Q1

REPORT INFORMATION
  Report Type: Spontaneous
  Country: IT (occurrence: IT)
  Receive Date: 20130124
  Receipt Date: 20130304
  Transmission Date: 20140127
  Serious: Yes (Hospitalization, Other)
  Sender: FDA-Public Use
  Company Number: IT-ELI_LILLY_AND_COMPANY-IT201301004490

PATIENT
  Age: 73 Year
  Sex: Male

DRUGS (6)
  1. HUMALOG LISPRO [Suspect]
     Indication: DIABETES MELLITUS
     Dosage: 21 IU, QD
     Route: 048
     Dates: start: 20121001, end: 20121222
  2. OXYGEN [Concomitant]
  3. PARACODINA                         /00063002/ [Concomitant]
     Dosage: 40 GTT, UNK
     Route: 048
  4. ANTRA [Concomitant]
  5. SELEDIE [Concomitant]
     Dosage: 11400 IU, UNKNOWN
  6. SOLDESAM [Concomitant]
     Dosage: 64 GTT, UNKNOWN
     Route: 048

REACTIONS (2)
  - Hypoglycaemic coma [Recovered/Resolved]
  - Incorrect route of drug administration [Unknown]
